FAERS Safety Report 6567348-6 (Version None)
Quarter: 2010Q1

REPORT INFORMATION
  Report Type: 
  Country: None (occurrence: None)
  Receive Date: 20100202
  Receipt Date: 20100122
  Transmission Date: 20100710
  Serious: Yes (Other)
  Sender: FDA-Public Use
  Company Number: PHHY2010MX04052

PATIENT
  Age: 82 Year
  Sex: Female

DRUGS (10)
  1. RASILEZ [Suspect]
     Indication: HYPERTENSION
     Dosage: 150 MG DAILY
     Route: 048
  2. JANUVIA [Concomitant]
     Dosage: 1 TABLET PER DAY
  3. ALTRULINE [Concomitant]
     Dosage: 1 TABLET PER DAY
  4. SENOKOT [Concomitant]
     Dosage: 1 TABLET PER DAY
  5. ZYLOPRIM [Concomitant]
     Dosage: UNK
  6. BASCUFLOU [Concomitant]
     Dosage: UNK
  7. DIGOXIN [Concomitant]
     Dosage: UNK
  8. RIVOTRIL [Concomitant]
     Dosage: UNK
  9. COUMADIN [Concomitant]
     Dosage: UNK
  10. MICARDIS HCT [Concomitant]
     Dosage: 1 TAB /DAY

REACTIONS (2)
  - ARTHRALGIA [None]
  - KNEE ARTHROPLASTY [None]
